FAERS Safety Report 10196460 (Version 1)
Quarter: 2014Q2

REPORT INFORMATION
  Report Type: Report from Study
  Country: US (occurrence: US)
  Receive Date: 20140527
  Receipt Date: 20140527
  Transmission Date: 20141212
  Serious: Yes (Hospitalization)
  Sender: FDA-Public Use
  Company Number: US-JNJFOC-20140512170

PATIENT
  Age: 76 Year
  Sex: Male
  Weight: 83.01 kg

DRUGS (10)
  1. REMICADE [Suspect]
     Indication: COLITIS ULCERATIVE
     Route: 042
     Dates: start: 201403
  2. REMICADE [Suspect]
     Indication: COLITIS ULCERATIVE
     Route: 042
     Dates: start: 2013
  3. CENTRUM SILVER [Concomitant]
     Dosage: INDICATION: ^BECAUSE HES 76 YEARS OLD^
     Route: 048
     Dates: start: 2013
  4. NEXIUM [Concomitant]
     Indication: GASTROOESOPHAGEAL REFLUX DISEASE
     Route: 048
  5. COLACE [Concomitant]
     Indication: CONSTIPATION
     Route: 048
     Dates: start: 201404
  6. LOPRESSOR [Concomitant]
     Indication: BLOOD PRESSURE
     Route: 048
     Dates: start: 201404
  7. SIMVASTATIN [Concomitant]
     Indication: BLOOD CHOLESTEROL
     Route: 048
     Dates: start: 201404
  8. FLOMAX [Concomitant]
     Indication: MICTURITION DISORDER
     Route: 048
     Dates: start: 201404
  9. COUMADIN [Concomitant]
     Indication: THROMBOSIS
     Route: 048
     Dates: start: 201404
  10. COUMADIN [Concomitant]
     Indication: THROMBOSIS
     Route: 048
     Dates: start: 201404

REACTIONS (7)
  - Road traffic accident [Recovered/Resolved]
  - Spinal fracture [Recovered/Resolved]
  - Abnormal loss of weight [Not Recovered/Not Resolved]
  - Staphylococcal infection [Recovered/Resolved]
  - Abasia [Unknown]
  - Asthenia [Unknown]
  - Back pain [Not Recovered/Not Resolved]
